FAERS Safety Report 21919259 (Version 1)
Quarter: 2023Q1

REPORT INFORMATION
  Report Type: Spontaneous
  Country: US (occurrence: None)
  Receive Date: 20230126
  Receipt Date: 20230126
  Transmission Date: 20230417
  Serious: Yes (Hospitalization)
  Sender: FDA-Public Use
  Company Number: None

PATIENT
  Age: 53 Year
  Sex: Female
  Weight: 90 kg

DRUGS (12)
  1. INGREZZA [Suspect]
     Active Substance: VALBENAZINE
     Indication: Tardive dyskinesia
     Dosage: FREQUENCY : DAILY;?
     Route: 048
     Dates: start: 20221110, end: 20230118
  2. Ativan 1mg QID [Concomitant]
     Dates: start: 20190101
  3. Lithium 300mg BID [Concomitant]
     Dates: start: 20190101
  4. Oxycodone 15mg QID [Concomitant]
     Dates: start: 20190101
  5. Fanapt 1mg QD [Concomitant]
     Dates: start: 20221201
  6. Wellbutrin HCL 75mg QD [Concomitant]
     Dates: start: 20190101
  7. dayvigo 5mg qhs [Concomitant]
     Dates: start: 20221215
  8. Bupernophine 7.5 mcg patch [Concomitant]
     Dates: start: 20190101
  9. Baclofen 20mg QID [Concomitant]
     Dates: start: 20190101
  10. Protonix 40mg qd [Concomitant]
     Dates: start: 20190101
  11. synthroid 50 mcg qs [Concomitant]
     Dates: start: 20190101
  12. Loperamide 2mg PRN [Concomitant]
     Dates: start: 20190101

REACTIONS (4)
  - Confusional state [None]
  - Psychotic disorder [None]
  - Syncope [None]
  - Therapy cessation [None]

NARRATIVE: CASE EVENT DATE: 20230118
